FAERS Safety Report 6194526-0 (Version None)
Quarter: 2009Q2

REPORT INFORMATION
  Report Type: 
  Country: None (occurrence: None)
  Receive Date: 20090519
  Receipt Date: 20090512
  Transmission Date: 20091009
  Serious: Yes (Other)
  Sender: FDA-Public Use
  Company Number: NL-JNJFOC-20090502942

PATIENT
  Age: 12 Year
  Sex: Female
  Weight: 30 kg

DRUGS (3)
  1. RISPERDAL [Suspect]
     Dosage: 20 DROPS
     Route: 065
  2. RISPERDAL [Suspect]
     Indication: DRUG USE FOR UNKNOWN INDICATION
     Dosage: SINCE 1.5 YEARS AGO
     Route: 065
  3. LORAZEPAM [Concomitant]
     Route: 065

REACTIONS (3)
  - DEPRESSION [None]
  - SUICIDAL IDEATION [None]
  - WEIGHT DECREASED [None]
